FAERS Safety Report 5808126-2 (Version None)
Quarter: 2008Q3

REPORT INFORMATION
  Report Type: 
  Country: None (occurrence: None)
  Receive Date: 20080708
  Receipt Date: 20080623
  Transmission Date: 20090109
  Serious: Yes (Death, Life-Threatening)
  Sender: FDA-Public Use
  Company Number: 2008S1010841

PATIENT
  Age: 86 Year
  Sex: Female

DRUGS (3)
  1. CITALOPRAM HYDROBROMIDE [Suspect]
     Indication: DEPRESSION
     Dosage: ORAL
     Route: 048
     Dates: start: 20080326, end: 20080414
  2. QUETIAPINE FUMARATE [Suspect]
     Indication: AGITATION
     Dosage: 25 MG; ORAL; DAILY;  ORAL
     Route: 048
     Dates: start: 20080330, end: 20080408
  3. QUETIAPINE FUMARATE [Suspect]
     Indication: PSYCHOTIC DISORDER
     Dosage: 25 MG; ORAL; DAILY;  ORAL
     Route: 048
     Dates: start: 20080330, end: 20080408

REACTIONS (2)
  - EXTRAPYRAMIDAL DISORDER [None]
  - HYPONATRAEMIA [None]
